FAERS Safety Report 7017656-X (Version None)
Quarter: 2010Q3

REPORT INFORMATION
  Report Type: 
  Country: None (occurrence: None)
  Receive Date: 20100928
  Receipt Date: 20100915
  Transmission Date: 20110219
  Serious: Yes (Hospitalization, Other)
  Sender: FDA-Public Use
  Company Number: US-PFIZER INC-2010117521

PATIENT
  Sex: Female
  Weight: 78.458 kg

DRUGS (3)
  1. LYRICA [Suspect]
     Indication: FIBROMYALGIA
     Dosage: UNK
     Route: 048
     Dates: end: 20100801
  2. NEXIUM [Concomitant]
     Dosage: 40 MG, 1X/DAY
  3. OXYCODONE [Concomitant]
     Dosage: 40 MG, 3X/DAY

REACTIONS (11)
  - ARTERIAL OCCLUSIVE DISEASE [None]
  - BLOOD CHOLESTEROL ABNORMAL [None]
  - DRUG INEFFECTIVE [None]
  - DYSURIA [None]
  - HYPERTENSION [None]
  - INSOMNIA [None]
  - NEURALGIA [None]
  - OEDEMA PERIPHERAL [None]
  - RENAL DISORDER [None]
  - SWELLING FACE [None]
  - WEIGHT INCREASED [None]
